FAERS Safety Report 4779675-3 (Version None)
Quarter: 2005Q3

REPORT INFORMATION
  Report Type: 
  Country: None (occurrence: None)
  Receive Date: 20050927
  Receipt Date: 20050517
  Transmission Date: 20060218
  Serious: Yes (Other)
  Sender: FDA-Public Use
  Company Number: PHBS2005BE07053

PATIENT
  Age: 71 Year
  Sex: Female
  Weight: 67 kg

DRUGS (13)
  1. ZOMETA [Suspect]
     Indication: METASTASES TO BONE
     Dosage: 4 MG, QMO
     Route: 042
     Dates: start: 20021007, end: 20050325
  2. DURAGESIC-100 [Concomitant]
     Dosage: 25 UG/D
     Route: 065
     Dates: start: 20030301, end: 20040429
  3. DURAGESIC-100 [Concomitant]
     Dosage: 75 UG/D
     Route: 065
     Dates: start: 20040430
  4. CAELYX [Concomitant]
     Route: 065
     Dates: start: 20050317, end: 20050512
  5. RADIATION THERAPY [Concomitant]
     Dosage: 55 GY AT BREAST
     Dates: start: 19910418, end: 19910604
  6. RADIATION THERAPY [Concomitant]
     Dosage: 23.25 GY AT HIP
     Dates: start: 20040524, end: 20050615
  7. 5-FU + EPIRUBICIN + CYCLOPHOSPHAMIDE [Concomitant]
     Dosage: 6 CYCLES
     Dates: start: 20010101
  8. NOLVADEX [Concomitant]
     Dates: start: 20010106, end: 20010601
  9. AROMASIN [Concomitant]
     Dates: start: 20010613, end: 20010901
  10. TAXOTERE [Concomitant]
     Dates: start: 20020101
  11. FEMARA [Concomitant]
     Dates: start: 20030101
  12. XELODA [Concomitant]
     Dates: start: 20040101
  13. FASLODEX [Concomitant]
     Dates: start: 20040101

REACTIONS (11)
  - ASEPTIC NECROSIS BONE [None]
  - BONE PAIN [None]
  - GINGIVAL RECESSION [None]
  - IMPAIRED HEALING [None]
  - OSTEONECROSIS [None]
  - PAIN [None]
  - PLASTIC SURGERY [None]
  - SINUS OPERATION [None]
  - SINUSITIS [None]
  - TOOTH DISORDER [None]
  - TOOTH EXTRACTION [None]
